FAERS Safety Report 6735935-8 (Version None)
Quarter: 2010Q2

REPORT INFORMATION
  Report Type: 
  Country: None (occurrence: None)
  Receive Date: 20100521
  Receipt Date: 20100514
  Transmission Date: 20101027
  Serious: Yes (Hospitalization)
  Sender: FDA-Public Use
  Company Number: B0650120A

PATIENT
  Sex: Male

DRUGS (4)
  1. SEREVENT [Suspect]
     Indication: CHRONIC OBSTRUCTIVE PULMONARY DISEASE
     Dosage: 100MCG PER DAY
     Route: 055
     Dates: start: 20100423, end: 20100424
  2. OMEPRAZOLE [Concomitant]
     Route: 048
  3. PULMICORT [Concomitant]
     Route: 055
  4. TERSIGAN [Concomitant]
     Route: 055

REACTIONS (2)
  - ACUTE CORONARY SYNDROME [None]
  - DYSPNOEA [None]
